FAERS Safety Report 23857041 (Version 1)
Quarter: 2024Q2

REPORT INFORMATION
  Report Type: Report from Study
  Country: BR (occurrence: BR)
  Receive Date: 20240515
  Receipt Date: 20240515
  Transmission Date: 20240715
  Serious: Yes (Other)
  Sender: FDA-Public Use
  Company Number: BR-JNJFOC-20240457772

PATIENT
  Age: 59 Year
  Sex: Female
  Weight: 109 kg

DRUGS (2)
  1. SIMPONI [Suspect]
     Active Substance: GOLIMUMAB
     Indication: Rheumatoid arthritis
     Route: 058
     Dates: start: 20240125
  2. SIMPONI [Suspect]
     Active Substance: GOLIMUMAB

REACTIONS (12)
  - Hypertension [Unknown]
  - Weight increased [Unknown]
  - Alopecia [Unknown]
  - Stress [Unknown]
  - Insomnia [Unknown]
  - Rhinitis [Unknown]
  - Sinusitis [Unknown]
  - Dyspnoea [Unknown]
  - Wheezing [Unknown]
  - Onychomadesis [Unknown]
  - Pruritus [Unknown]
  - Blood glucose abnormal [Unknown]
